FAERS Safety Report 13508075 (Version 2)
Quarter: 2017Q2

REPORT INFORMATION
  Report Type: Report from Study
  Country: JP (occurrence: JP)
  Receive Date: 20170503
  Receipt Date: 20170511
  Transmission Date: 20170830
  Serious: Yes (Hospitalization)
  Sender: FDA-Public Use
  Company Number: JP-EISAI MEDICAL RESEARCH-EC-2016-023736

PATIENT
  Age: 82 Year
  Sex: Male
  Weight: 54 kg

DRUGS (10)
  1. HIRUDOID [Concomitant]
     Active Substance: GLYCOSAMINOGLYCANS
  2. MIYA-BM [Concomitant]
     Active Substance: CLOSTRIDIUM BUTYRICUM SPORES STRAIN M-55
  3. DONEPEZIL. [Suspect]
     Active Substance: DONEPEZIL
     Indication: DEMENTIA WITH LEWY BODIES
     Dosage: 3 MG OR PLACEBO
     Route: 048
     Dates: start: 20170117, end: 20170130
  4. YOKUKANSAN [Concomitant]
     Active Substance: HERBALS
  5. DONEPEZIL. [Suspect]
     Active Substance: DONEPEZIL
     Dosage: 5 MG OR PLACEBO
     Route: 048
     Dates: start: 20170131, end: 20170227
  6. DONEPEZIL. [Suspect]
     Active Substance: DONEPEZIL
     Dosage: CONTINOUS TREATMENT PERIOD AT 5 MG OR 10 MG
     Route: 048
     Dates: start: 20170411, end: 20170501
  7. CRESTOR OD [Concomitant]
  8. MAGNESIUM OXIDE. [Concomitant]
     Active Substance: MAGNESIUM OXIDE
  9. DONEPEZIL. [Suspect]
     Active Substance: DONEPEZIL
     Dosage: 10 MG OR PLACEBO
     Route: 048
     Dates: start: 20170228, end: 20170410
  10. NEUROVITAN [Concomitant]
     Active Substance: VITAMINS

REACTIONS (1)
  - Femoral neck fracture [Not Recovered/Not Resolved]

NARRATIVE: CASE EVENT DATE: 20170429
